FAERS Safety Report 6268470-4 (Version None)
Quarter: 2009Q3

REPORT INFORMATION
  Report Type: 
  Country: None (occurrence: None)
  Receive Date: 20090709
  Receipt Date: 20090709
  Transmission Date: 20100115
  Serious: No
  Sender: FDA-Public Use
  Company Number: None

PATIENT
  Sex: Female
  Weight: 53.0709 kg

DRUGS (1)
  1. MIRTAZAPINE [Suspect]
     Indication: DEPRESSION
     Dosage: 30 MG AT BEDTIME PO
     Route: 048
     Dates: start: 20080221, end: 20090612

REACTIONS (2)
  - MUSCLE SPASMS [None]
  - MYALGIA [None]
